FAERS Safety Report 16187034 (Version 3)
Quarter: 2019Q2

REPORT INFORMATION
  Report Type: Spontaneous
  Country: US (occurrence: US)
  Receive Date: 20190411
  Receipt Date: 20190426
  Transmission Date: 20190711
  Serious: No
  Sender: FDA-Public Use
  Company Number: US-TEVA-2019-US-1032245

PATIENT
  Sex: Male

DRUGS (1)
  1. PROCTO-PAK [Suspect]
     Active Substance: HYDROCORTISONE
     Indication: RASH PRURITIC
     Route: 065

REACTIONS (2)
  - Drug ineffective [Unknown]
  - Pruritus [Not Recovered/Not Resolved]
